FAERS Safety Report 24362519 (Version 1)
Quarter: 2024Q3

REPORT INFORMATION
  Report Type: Spontaneous
  Country: US (occurrence: US)
  Receive Date: 20240925
  Receipt Date: 20240925
  Transmission Date: 20241017
  Serious: No
  Sender: CELLTRION
  Company Number: US-CELLTRION INC.-2023US021894

PATIENT

DRUGS (1)
  1. INFLECTRA [Suspect]
     Active Substance: INFLIXIMAB-DYYB
     Indication: Product used for unknown indication
     Dosage: 1MG IV EVERY 8 WEEKS (100MG INTRAVENOUS SOLUTION)
     Route: 042

REACTIONS (4)
  - Impaired work ability [Unknown]
  - Condition aggravated [Unknown]
  - Illness [Unknown]
  - Intentional dose omission [Unknown]
